FAERS Safety Report 8277931-8 (Version None)
Quarter: 2012Q2

REPORT INFORMATION
  Report Type: 
  Country: None (occurrence: None)
  Receive Date: 20120412
  Receipt Date: 20120402
  Transmission Date: 20120825
  Serious: No
  Sender: FDA-Public Use
  Company Number: IT-ELI_LILLY_AND_COMPANY-IT201203001861

PATIENT
  Sex: Female

DRUGS (4)
  1. DIBASE [Concomitant]
     Dosage: 25000 IU, MONTHLY (1/M)
     Route: 058
  2. CALCIUM CARBONATE [Concomitant]
     Dosage: 1000 MG, UNK
     Dates: start: 20110301
  3. PROPAFENONE HCL [Concomitant]
     Dosage: 325 MG, BID
     Route: 048
  4. FORTEO [Suspect]
     Indication: OSTEOPOROSIS POSTMENOPAUSAL
     Dosage: 20 UG, QD
     Route: 058
     Dates: start: 20110301, end: 20120301

REACTIONS (3)
  - BONE PAIN [None]
  - PAIN [None]
  - GAMMA-GLUTAMYLTRANSFERASE INCREASED [None]
